FAERS Safety Report 11359317 (Version 2)
Quarter: 2015Q3

REPORT INFORMATION
  Report Type: Report from Study
  Country: JP (occurrence: JP)
  Receive Date: 20150807
  Receipt Date: 20150808
  Transmission Date: 20151125
  Serious: Yes (Hospitalization, Other)
  Sender: FDA-Public Use
  Company Number: JP-SPECTRUM PHARMACEUTICALS, INC.-15-Z-JP-00343

PATIENT
  Age: 73 Year
  Sex: Female

DRUGS (12)
  1. PREDNISOLONE. [Suspect]
     Active Substance: PREDNISOLONE
     Indication: NODAL MARGINAL ZONE B-CELL LYMPHOMA STAGE IV
     Dosage: UNK, UNKNOWN
     Route: 065
  2. DOXORUBICIN [Suspect]
     Active Substance: DOXORUBICIN
     Indication: NODAL MARGINAL ZONE B-CELL LYMPHOMA STAGE IV
  3. CLADRIBINE. [Suspect]
     Active Substance: CLADRIBINE
     Indication: NODAL MARGINAL ZONE B-CELL LYMPHOMA STAGE IV
     Dosage: UNK, UNKNOWN
     Route: 065
     Dates: start: 200806, end: 200812
  4. RITUXIMAB [Suspect]
     Active Substance: RITUXIMAB
     Dosage: UNK, UNKNOWN
     Route: 042
     Dates: start: 20070111, end: 20070125
  5. VINCRISTINE [Suspect]
     Active Substance: VINCRISTINE
     Indication: NODAL MARGINAL ZONE B-CELL LYMPHOMA STAGE IV
     Dosage: UNK, UNKNOWN
     Route: 065
  6. RITUXIMAB [Suspect]
     Active Substance: RITUXIMAB
     Dosage: UNK, UNKNOWN
     Route: 042
     Dates: start: 20080711, end: 20081202
  7. MITOXANTRONE [Suspect]
     Active Substance: MITOXANTRONE HYDROCHLORIDE
     Indication: NODAL MARGINAL ZONE B-CELL LYMPHOMA STAGE IV
     Dosage: UNK, UNKNOWN
     Route: 065
     Dates: start: 200806, end: 200812
  8. RITUXIMAB [Suspect]
     Active Substance: RITUXIMAB
     Indication: NODAL MARGINAL ZONE B-CELL LYMPHOMA STAGE IV
     Dosage: 250 MG/M2, SINGLE
     Route: 042
     Dates: start: 20090415, end: 20090415
  9. CYCLOPHOSPHAMIDE. [Suspect]
     Active Substance: CYCLOPHOSPHAMIDE
     Indication: NODAL MARGINAL ZONE B-CELL LYMPHOMA STAGE IV
     Dosage: UNK, UNKNOWN
     Route: 065
  10. ZEVALIN [Suspect]
     Active Substance: IBRITUMOMAB TIUXETAN
     Indication: NODAL MARGINAL ZONE B-CELL LYMPHOMA STAGE IV
     Dosage: 833 MBQ, SINGLE
     Route: 042
     Dates: start: 20090415, end: 20090415
  11. RITUXIMAB [Suspect]
     Active Substance: RITUXIMAB
     Dosage: 250 MG/M2, SINGLE
     Route: 042
     Dates: start: 20090408, end: 20090408
  12. ZEVALIN [Suspect]
     Active Substance: IBRITUMOMAB TIUXETAN
     Dosage: 130 MBQ, SINGLE
     Route: 042
     Dates: start: 20090408, end: 20090408

REACTIONS (1)
  - Lung neoplasm malignant [Recovering/Resolving]

NARRATIVE: CASE EVENT DATE: 20150529
